FAERS Safety Report 5039797-9 (Version None)
Quarter: 2006Q2

REPORT INFORMATION
  Report Type: 
  Country: None (occurrence: None)
  Receive Date: 20060601
  Receipt Date: 20060111
  Transmission Date: 20061013
  Serious: No
  Sender: FDA-Public Use
  Company Number: 2006PV006917

PATIENT
  Age: 72 Year
  Sex: Female
  Weight: 96.6162 kg

DRUGS (6)
  1. BYETTA [Suspect]
     Indication: DIABETES MELLITUS NON-INSULIN-DEPENDENT
     Dosage: SEE IMAGE
     Route: 058
     Dates: start: 20050101, end: 20050101
  2. BYETTA [Suspect]
     Indication: DIABETES MELLITUS NON-INSULIN-DEPENDENT
     Dosage: SEE IMAGE
     Route: 058
     Dates: start: 20050101
  3. CORTISONE INJECTION [Suspect]
     Dosage: SC
     Route: 058
     Dates: start: 20051228
  4. METAGLIP [Concomitant]
  5. AVANDIA [Concomitant]
  6. LANTUS [Concomitant]

REACTIONS (5)
  - BLOOD GLUCOSE DECREASED [None]
  - DECREASED APPETITE [None]
  - FEELING JITTERY [None]
  - NASOPHARYNGITIS [None]
  - WEIGHT DECREASED [None]
